FAERS Safety Report 22133643 (Version 1)
Quarter: 2023Q1

REPORT INFORMATION
  Report Type: Spontaneous
  Country: US (occurrence: US)
  Receive Date: 20230324
  Receipt Date: 20230324
  Transmission Date: 20230417
  Serious: No
  Sender: FDA-Public Use
  Company Number: US-AUROBINDO-AUR-APL-2022-004414

PATIENT
  Sex: Female

DRUGS (1)
  1. GABAPENTIN [Suspect]
     Active Substance: GABAPENTIN
     Indication: Herpes zoster
     Dosage: 300 MILLIGRAM, TWO TIMES A DAY
     Route: 048

REACTIONS (1)
  - Visual impairment [Unknown]
